FAERS Safety Report 6170003-8 (Version None)
Quarter: 2009Q2

REPORT INFORMATION
  Report Type: 
  Country: None (occurrence: None)
  Receive Date: 20090424
  Receipt Date: 20090219
  Transmission Date: 20091009
  Serious: Yes (Hospitalization)
  Sender: FDA-Public Use
  Company Number: 6048878

PATIENT
  Age: 72 Year
  Sex: Female

DRUGS (13)
  1. LEVOTHYROXINE SODIUM [Suspect]
     Indication: HYPOTHYROIDISM
     Dosage: 100 MCG (100 MCG, 1 IN 1 D)
     Route: 048
  2. CALCICHEW (TABLET) (CALCIUM CARBONATE) [Suspect]
     Indication: OSTEOARTHRITIS
     Dosage: 2000 MG (500 MG, 4 IN 1 D)
     Route: 048
  3. PANTOPRAZOLE SODIUM [Suspect]
     Indication: DRUG USE FOR UNKNOWN INDICATION
     Dosage: 20 MG (20 MG, 1 IN 1 D)
     Route: 048
  4. CARBAMAZEPINE [Suspect]
     Indication: EPILEPSY
     Dosage: 600 MG (200 MG, 3 IN 1 D)
     Route: 048
  5. ALENDRONIC ACID (ALENDRONIC ACID) [Suspect]
     Indication: OSTEOARTHRITIS
  6. ACETAMINOPHEN [Suspect]
     Indication: MIGRAINE
     Route: 048
  7. SERETIDE (FLUTICASONE PROPIONATE, SALMETEROL XINAFOATE) [Suspect]
     Indication: ASTHMA
     Dosage: 4 DOSAGE FORMS (2 DOSAGE FORMS, 2 IN 1 D)
     Route: 055
     Dates: start: 20050101
  8. VENTOLIN [Suspect]
     Indication: ASTHMA
     Route: 055
  9. CODEINE PHOSPHATE (CODEINE PHOSPHATE) [Suspect]
     Indication: MIGRAINE
     Route: 048
  10. GAVISCON (SODIUM BICARBONATE, ALUMINUM HYDROXIDE GEL, DRIED, ALGINIC A [Suspect]
     Indication: DRUG USE FOR UNKNOWN INDICATION
     Route: 048
  11. RISEDRONATE SODIUM [Suspect]
     Indication: OSTEOARTHRITIS
     Dosage: 35 MG (35 MG, 1 IN 1 D)
     Route: 048
  12. WARFARIN SODIUM [Suspect]
     Indication: DEEP VEIN THROMBOSIS
     Dosage: 1 DOSAGE FORMS (1 DOSAGE FORMS, 1 IN 1 D)
     Route: 048
  13. ZOLMITRIPTAN (ZOLMITRIPTAN) [Suspect]
     Indication: MIGRAINE
     Route: 048

REACTIONS (3)
  - CEREBROVASCULAR ACCIDENT [None]
  - COUGH [None]
  - DYSPNOEA [None]
